FAERS Safety Report 5633490-7 (Version None)
Quarter: 2008Q1

REPORT INFORMATION
  Report Type: 
  Country: None (occurrence: None)
  Receive Date: 20080219
  Receipt Date: 20080207
  Transmission Date: 20080703
  Serious: Yes (Other)
  Sender: FDA-Public Use
  Company Number: SPV1-2008-00267

PATIENT
  Age: 9 Year
  Sex: Female
  Weight: 59 kg

DRUGS (7)
  1. DAYTRANA [Suspect]
     Indication: ATTENTION DEFICIT/HYPERACTIVITY DISORDER
     Dosage: 20 MG, 1X/DAY: QD, TRANSDERMAL; 15 MG, 1X/DAY: QD, TRANSDERMAL; 10 MG, 1X/DAY: QD, TRANSDERMAL
     Route: 062
     Dates: start: 20070101, end: 20070801
  2. DAYTRANA [Suspect]
     Indication: ATTENTION DEFICIT/HYPERACTIVITY DISORDER
     Dosage: 20 MG, 1X/DAY: QD, TRANSDERMAL; 15 MG, 1X/DAY: QD, TRANSDERMAL; 10 MG, 1X/DAY: QD, TRANSDERMAL
     Route: 062
     Dates: start: 20070801, end: 20080101
  3. DAYTRANA [Suspect]
     Indication: ATTENTION DEFICIT/HYPERACTIVITY DISORDER
     Dosage: 20 MG, 1X/DAY: QD, TRANSDERMAL; 15 MG, 1X/DAY: QD, TRANSDERMAL; 10 MG, 1X/DAY: QD, TRANSDERMAL
     Route: 062
     Dates: start: 20080101
  4. SINGULAIR /01362601/ (MONTELUKAST) [Concomitant]
  5. FLOVENT [Concomitant]
  6. ZYRTEC [Concomitant]
  7. PROVENTIL /00139501/ (SALBUTAMOL) [Concomitant]

REACTIONS (6)
  - ABNORMAL BEHAVIOUR [None]
  - AGGRESSION [None]
  - DEVICE FAILURE [None]
  - PHARMACEUTICAL PRODUCT COMPLAINT [None]
  - SELF INJURIOUS BEHAVIOUR [None]
  - SUICIDAL IDEATION [None]
